FAERS Safety Report 5007707-6 (Version None)
Quarter: 2006Q2

REPORT INFORMATION
  Report Type: 
  Country: None (occurrence: None)
  Receive Date: 20060522
  Receipt Date: 20060424
  Transmission Date: 20061013
  Serious: Yes (Other)
  Sender: FDA-Public Use
  Company Number: PHEH2006US05328

PATIENT
  Age: 71 Year
  Sex: Male

DRUGS (9)
  1. ZOMETA [Suspect]
     Indication: METASTASES TO BONE
     Dosage: 4MG QMO
     Dates: start: 20030413
  2. PREDNISONE TAB [Concomitant]
     Indication: EVAN'S SYNDROME
     Dates: start: 19950101
  3. NOVANTRONE [Concomitant]
     Dosage: 25MG Q3WK
     Route: 042
     Dates: start: 20041008, end: 20041028
  4. TAXOL [Concomitant]
     Indication: PROSTATE CANCER
     Dosage: 380MG 3WK
     Route: 042
     Dates: start: 20041122, end: 20050103
  5. ADRIAMYCIN PFS [Concomitant]
     Indication: PROSTATE CANCER
     Dosage: 40MG QWK
     Route: 042
     Dates: start: 20050131, end: 20050228
  6. VELBAN [Concomitant]
     Dosage: 8MG WKLY
     Route: 042
     Dates: start: 20050325, end: 20050715
  7. PROCRIT                            /00909301/ [Concomitant]
     Indication: ANAEMIA
     Dosage: 40,000 QKLY
     Route: 058
     Dates: start: 20050401
  8. METASTRON [Concomitant]
     Indication: PROSTATE CANCER
     Dates: start: 20050801
  9. ESTRAMUSTINE [Concomitant]

REACTIONS (3)
  - ABSCESS ORAL [None]
  - FISTULA [None]
  - TOOTH ABSCESS [None]
